FAERS Safety Report 6748488-5 (Version None)
Quarter: 2010Q2

REPORT INFORMATION
  Report Type: 
  Country: None (occurrence: None)
  Receive Date: 20100526
  Receipt Date: 20081003
  Transmission Date: 20101027
  Serious: No
  Sender: FDA-Public Use
  Company Number: 2008-00111

PATIENT
  Sex: Female

DRUGS (2)
  1. ZICAM COLD REMEDY NASAL GEL [Suspect]
     Dosage: QD X 1 DOSE
     Dates: start: 20081002
  2. ZICAM EXTREME CONGESTION RELIEF [Suspect]
     Dosage: QD X 1 DOSE
     Dates: start: 20081002

REACTIONS (2)
  - AGEUSIA [None]
  - ANOSMIA [None]
